FAERS Safety Report 20907003 (Version 2)
Quarter: 2022Q2

REPORT INFORMATION
  Report Type: Report from Study
  Country: FR (occurrence: FR)
  Receive Date: 20220602
  Receipt Date: 20220615
  Transmission Date: 20220720
  Serious: Yes (Other)
  Sender: FDA-Public Use
  Company Number: FR-TEVA-2022-FR-2041195

PATIENT
  Sex: Female

DRUGS (3)
  1. CISPLATIN [Suspect]
     Active Substance: CISPLATIN
     Indication: Ovarian epithelial cancer
     Route: 033
  2. EPINEPHRINE [Suspect]
     Active Substance: EPINEPHRINE
     Indication: Ovarian epithelial cancer
     Route: 033
  3. SODIUM CHLORIDE [Concomitant]
     Active Substance: SODIUM CHLORIDE
     Indication: Ovarian epithelial cancer
     Route: 033

REACTIONS (1)
  - Supraventricular tachycardia [Unknown]
